FAERS Safety Report 25919491 (Version 1)
Quarter: 2025Q4

REPORT INFORMATION
  Report Type: Spontaneous
  Country: US (occurrence: US)
  Receive Date: 20251014
  Receipt Date: 20251014
  Transmission Date: 20260117
  Serious: Yes (Hospitalization)
  Sender: NOVO NORDISK
  Company Number: US-NOVOPROD-1537604

PATIENT
  Sex: Female

DRUGS (2)
  1. WEGOVY [Suspect]
     Active Substance: SEMAGLUTIDE
     Dosage: 0.5 MG
  2. WEGOVY [Suspect]
     Active Substance: SEMAGLUTIDE
     Indication: Product used for unknown indication
     Dosage: UNK (ESCALATION)

REACTIONS (2)
  - Anxiety [Unknown]
  - Depression [Unknown]
